FAERS Safety Report 18558075 (Version 2)
Quarter: 2020Q4

REPORT INFORMATION
  Report Type: Report from Study
  Country: US (occurrence: US)
  Receive Date: 20201130
  Receipt Date: 20201217
  Transmission Date: 20210114
  Serious: Yes (Other)
  Sender: FDA-Public Use
  Company Number: US-BIOVITRUM-2020US6512

PATIENT
  Age: 40 Year
  Sex: Female

DRUGS (2)
  1. KINERET [Suspect]
     Active Substance: ANAKINRA
     Indication: STILL^S DISEASE
     Route: 058
     Dates: start: 20190514
  2. KINERET [Suspect]
     Active Substance: ANAKINRA
     Route: 058
     Dates: start: 20190514

REACTIONS (4)
  - Off label use [Unknown]
  - White blood cell count decreased [Recovered/Resolved]
  - COVID-19 [Unknown]
  - Infection [Unknown]

NARRATIVE: CASE EVENT DATE: 20190514
